FAERS Safety Report 11351225 (Version 2)
Quarter: 2015Q3

REPORT INFORMATION
  Report Type: Spontaneous
  Country: US (occurrence: US)
  Receive Date: 20150807
  Receipt Date: 20150907
  Transmission Date: 20151125
  Serious: No
  Sender: FDA-Public Use
  Company Number: PHEH2015US015261

PATIENT

DRUGS (1)
  1. MIACALCIN [Suspect]
     Active Substance: CALCITONIN SALMON
     Indication: PRODUCT USED FOR UNKNOWN INDICATION
     Route: 042

REACTIONS (1)
  - Incorrect route of drug administration [Unknown]
